FAERS Safety Report 4495710-4 (Version None)
Quarter: 2004Q4

REPORT INFORMATION
  Report Type: 
  Country: None (occurrence: None)
  Receive Date: 20041108
  Receipt Date: 20041003
  Transmission Date: 20050328
  Serious: Yes (Hospitalization, Other)
  Sender: FDA-Public Use
  Company Number: US-MERCK-0410USA00409

PATIENT
  Age: 57 Year
  Sex: Female
  Weight: 78 kg

DRUGS (17)
  1. VIOXX [Suspect]
     Indication: ARTHRITIS
     Route: 048
     Dates: start: 19990101, end: 20000101
  2. VIOXX [Suspect]
     Route: 048
     Dates: start: 20000101, end: 20010101
  3. VIOXX [Suspect]
     Route: 048
     Dates: start: 20010101, end: 20020605
  4. VIOXX [Suspect]
     Route: 048
     Dates: start: 20020101, end: 20020101
  5. VIOXX [Suspect]
     Route: 048
     Dates: start: 20031209, end: 20040801
  6. VIOXX [Suspect]
     Route: 048
     Dates: start: 20040804, end: 20040930
  7. VIOXX [Suspect]
     Route: 048
     Dates: start: 20020101, end: 20031201
  8. VIOXX [Suspect]
     Indication: OSTEOARTHRITIS
     Route: 048
     Dates: start: 19990101, end: 20000101
  9. VIOXX [Suspect]
     Route: 048
     Dates: start: 20000101, end: 20010101
  10. VIOXX [Suspect]
     Route: 048
     Dates: start: 20010101, end: 20020605
  11. VIOXX [Suspect]
     Route: 048
     Dates: start: 20020101, end: 20020101
  12. VIOXX [Suspect]
     Route: 048
     Dates: start: 20031209, end: 20040801
  13. VIOXX [Suspect]
     Route: 048
     Dates: start: 20040804, end: 20040930
  14. VIOXX [Suspect]
     Route: 048
     Dates: start: 20020101, end: 20031201
  15. LEVOXYL [Concomitant]
     Route: 065
     Dates: start: 19790101
  16. ASPIRIN [Concomitant]
     Route: 065
     Dates: start: 20030801
  17. ZOCOR [Concomitant]
     Route: 048
     Dates: start: 20040601

REACTIONS (39)
  - ARTERIAL OCCLUSIVE DISEASE [None]
  - BACK DISORDER [None]
  - BACK PAIN [None]
  - BLOOD CHOLESTEROL INCREASED [None]
  - BURSITIS [None]
  - CARDIAC DISORDER [None]
  - CAROTID ARTERY STENOSIS [None]
  - CARPAL TUNNEL SYNDROME [None]
  - DIVERTICULITIS [None]
  - DIZZINESS [None]
  - DRUG INEFFECTIVE [None]
  - FATIGUE [None]
  - GASTRITIS [None]
  - HEADACHE [None]
  - HEART RATE DECREASED [None]
  - HYPERLIPIDAEMIA [None]
  - HYPERTENSION [None]
  - HYPOTHYROIDISM [None]
  - JOINT STIFFNESS [None]
  - LABILE HYPERTENSION [None]
  - LEUKOCYTOCLASTIC VASCULITIS [None]
  - MONARTHRITIS [None]
  - MUSCLE SPASMS [None]
  - MUSCULOSKELETAL PAIN [None]
  - MYALGIA [None]
  - NEUROPATHY [None]
  - OEDEMA PERIPHERAL [None]
  - OSTEOARTHRITIS [None]
  - PAIN [None]
  - PHARYNGOLARYNGEAL PAIN [None]
  - RASH [None]
  - ROTATOR CUFF SYNDROME [None]
  - SKIN ULCER [None]
  - STOMACH DISCOMFORT [None]
  - SUBCLAVIAN VEIN THROMBOSIS [None]
  - SYSTEMIC LUPUS ERYTHEMATOSUS [None]
  - TREATMENT NONCOMPLIANCE [None]
  - VAGINAL MYCOSIS [None]
  - WEIGHT INCREASED [None]
